FAERS Safety Report 14310511 (Version 1)
Quarter: 2017Q4

REPORT INFORMATION
  Report Type: Spontaneous
  Country: US (occurrence: US)
  Receive Date: 20171220
  Receipt Date: 20171220
  Transmission Date: 20180321
  Serious: No
  Sender: FDA-Public Use
  Company Number: None

PATIENT
  Sex: Female
  Weight: 36 kg

DRUGS (8)
  1. BENADRYL [Concomitant]
     Active Substance: DIPHENHYDRAMINE HYDROCHLORIDE
  2. ONE A DAY KID^S VITAMIN [Concomitant]
  3. AMOXICILLIN. [Concomitant]
     Active Substance: AMOXICILLIN
  4. DEMEROL [Suspect]
     Active Substance: MEPERIDINE HYDROCHLORIDE
  5. VERSED [Suspect]
     Active Substance: MIDAZOLAM HYDROCHLORIDE
     Indication: ANXIETY
     Dosage: ?          QUANTITY:1 MG;OTHER FREQUENCY:ONE TIME;?
     Route: 048
     Dates: start: 20171220, end: 20171220
  6. VERSED [Suspect]
     Active Substance: MIDAZOLAM HYDROCHLORIDE
     Indication: PAIN
     Dosage: ?          QUANTITY:1 MG;OTHER FREQUENCY:ONE TIME;?
     Route: 048
     Dates: start: 20171220, end: 20171220
  7. HYDROCODONE BITARTRATE AND ACETAMINOPHEN [Concomitant]
     Active Substance: ACETAMINOPHEN\HYDROCODONE BITARTRATE
  8. CHILDREN CLARITIN ALLERGY [Concomitant]
     Active Substance: LORATADINE

REACTIONS (7)
  - Hyperventilation [None]
  - Vertigo [None]
  - Somnolence [None]
  - Hallucination [None]
  - Blindness transient [None]
  - Performance fear [None]
  - Crying [None]
